FAERS Safety Report 9209546 (Version 1)
Quarter: 2013Q2

REPORT INFORMATION
  Report Type: Spontaneous
  Country: US (occurrence: None)
  Receive Date: 20130403
  Receipt Date: 20130403
  Transmission Date: 20140414
  Serious: Yes (Other)
  Sender: FDA-Public Use
  Company Number: None

PATIENT
  Age: 64 Year
  Sex: Female
  Weight: 113.4 kg

DRUGS (3)
  1. QUINAPRIL [Suspect]
  2. ATENOLOL [Suspect]
  3. NATEGLINIDE [Suspect]
     Indication: HYPERTENSION

REACTIONS (1)
  - Drug hypersensitivity [None]
